FAERS Safety Report 8229581-7 (Version None)
Quarter: 2012Q1

REPORT INFORMATION
  Report Type: 
  Country: None (occurrence: None)
  Receive Date: 20120322
  Receipt Date: 20120321
  Transmission Date: 20120608
  Serious: Yes (Hospitalization, Other)
  Sender: FDA-Public Use
  Company Number: JP-ABBOTT-11P-087-0733969-00

PATIENT
  Sex: Male
  Weight: 47.8 kg

DRUGS (5)
  1. HUMIRA [Suspect]
     Dates: start: 20110629, end: 20110629
  2. MESALAMINE [Concomitant]
     Indication: CROHN'S DISEASE
     Route: 048
     Dates: start: 20100108
  3. HUMIRA [Suspect]
     Indication: CROHN'S DISEASE
     Route: 058
     Dates: start: 20110609, end: 20110609
  4. HUMIRA [Suspect]
     Dates: start: 20110713
  5. TPN [Concomitant]
     Indication: CROHN'S DISEASE
     Route: 048
     Dates: start: 20110506

REACTIONS (2)
  - NEUTROPHIL COUNT DECREASED [None]
  - WHITE BLOOD CELL COUNT DECREASED [None]
